FAERS Safety Report 4663020-8 (Version None)
Quarter: 2005Q2

REPORT INFORMATION
  Report Type: 
  Country: None (occurrence: None)
  Receive Date: 20050506
  Receipt Date: 20040909
  Transmission Date: 20051028
  Serious: Yes (Other)
  Sender: FDA-Public Use
  Company Number: US-2004-031678

PATIENT
  Sex: Male

DRUGS (1)
  1. MAGNEVIST [Suspect]
     Indication: NUCLEAR MAGNETIC RESONANCE IMAGING
     Dosage: 18 ML, 1 DOSE, INTRAVENOUS
     Route: 042
     Dates: start: 20040909, end: 20040909

REACTIONS (4)
  - HYPERHIDROSIS [None]
  - MUSCLE TIGHTNESS [None]
  - SWOLLEN TONGUE [None]
  - URTICARIA LOCALISED [None]
